FAERS Safety Report 23858890 (Version 1)
Quarter: 2024Q2

REPORT INFORMATION
  Report Type: Spontaneous
  Country: US (occurrence: US)
  Receive Date: 20240515
  Receipt Date: 20240515
  Transmission Date: 20240716
  Serious: No
  Sender: FDA-Public Use
  Company Number: US-VANTIVE-2024VAN016884

PATIENT
  Age: 52 Year
  Sex: Female

DRUGS (1)
  1. EXTRANEAL [Suspect]
     Active Substance: CALCIUM CHLORIDE\ICODEXTRIN\MAGNESIUM CHLORIDE\SODIUM CHLORIDE\SODIUM LACTATE
     Dosage: UNK
     Route: 033
     Dates: start: 20240416

REACTIONS (3)
  - Rash [Unknown]
  - Burning sensation [Unknown]
  - Erythema [Unknown]

NARRATIVE: CASE EVENT DATE: 20240509
